FAERS Safety Report 7589529-5 (Version None)
Quarter: 2011Q3

REPORT INFORMATION
  Report Type: 
  Country: None (occurrence: None)
  Receive Date: 20110705
  Receipt Date: 20110628
  Transmission Date: 20111222
  Serious: Yes (Other)
  Sender: FDA-Public Use
  Company Number: GB-JNJFOC-20110610051

PATIENT
  Age: 61 Year
  Sex: Male

DRUGS (3)
  1. PHENYTOIN [Suspect]
     Indication: EPILEPSY
     Route: 065
  2. PREGABALIN [Suspect]
     Indication: EPILEPSY
     Route: 065
  3. TOPIRAMATE [Suspect]
     Indication: EPILEPSY
     Route: 048

REACTIONS (2)
  - BLOOD HOMOCYSTEINE INCREASED [None]
  - RETINAL VEIN OCCLUSION [None]
